FAERS Safety Report 8919082 (Version 1)
Quarter: 2012Q4

REPORT INFORMATION
  Report Type: 
  Country: US (occurrence: US)
  Receive Date: 20121121
  Receipt Date: 20121121
  Transmission Date: 20130627
  Serious: No
  Sender: FDA-Public Use
  Company Number: US-ASTRAZENECA-2012SE24565

PATIENT
  Age: 4 Year
  Sex: Male
  Weight: 19.1 kg

DRUGS (2)
  1. NEXIUM [Suspect]
     Indication: GASTROOESOPHAGEAL REFLUX DISEASE
     Route: 048
     Dates: start: 20120412
  2. MIRALAX [Concomitant]
     Indication: CONSTIPATION

REACTIONS (5)
  - Aversion [Unknown]
  - Gastrooesophageal reflux disease [Unknown]
  - Vomiting [Unknown]
  - Intentional drug misuse [Unknown]
  - Drug ineffective [Unknown]
